FAERS Safety Report 6883873-2 (Version None)
Quarter: 2010Q3

REPORT INFORMATION
  Report Type: 
  Country: None (occurrence: None)
  Receive Date: 20100729
  Receipt Date: 20100722
  Transmission Date: 20110219
  Serious: Yes (Hospitalization, Other)
  Sender: FDA-Public Use
  Company Number: US-RB-020567-09

PATIENT
  Age: 57 Year
  Sex: Male

DRUGS (2)
  1. SUBOXONE [Suspect]
     Indication: DRUG DEPENDENCE
     Route: 060
     Dates: start: 20071001
  2. SEROQUEL [Suspect]
     Indication: DEPRESSION
     Dates: start: 20090101, end: 20100101

REACTIONS (18)
  - ANGER [None]
  - BACK PAIN [None]
  - CHILLS [None]
  - CONTUSION [None]
  - CORONARY ARTERIAL STENT INSERTION [None]
  - FALL [None]
  - HYPERGLYCAEMIA [None]
  - HYPOTENSION [None]
  - INFLUENZA LIKE ILLNESS [None]
  - IRRITABILITY [None]
  - KIDNEY INFECTION [None]
  - LOSS OF CONSCIOUSNESS [None]
  - MENTAL IMPAIRMENT [None]
  - MUSCULOSKELETAL PAIN [None]
  - MUSCULOSKELETAL STIFFNESS [None]
  - NASOPHARYNGITIS [None]
  - PAIN IN EXTREMITY [None]
  - RENAL FAILURE [None]
